FAERS Safety Report 7995288-4 (Version None)
Quarter: 2011Q4

REPORT INFORMATION
  Report Type: 
  Country: None (occurrence: None)
  Receive Date: 20111217
  Receipt Date: 20111217
  Transmission Date: 20120403
  Serious: No
  Sender: FDA-Public Use
  Company Number: None

PATIENT

DRUGS (4)
  1. LEVETIRACETAM [Suspect]
  2. OXCARBAZEPINE [Suspect]
  3. DEXAMETHASONE [Suspect]
  4. PHENYTOIN [Suspect]

REACTIONS (3)
  - DRUG DISPENSING ERROR [None]
  - CONVULSION [None]
  - MEDICATION ERROR [None]
